FAERS Safety Report 12300548 (Version 2)
Quarter: 2019Q2

REPORT INFORMATION
  Report Type: Spontaneous
  Country: US (occurrence: US)
  Receive Date: 20160425
  Receipt Date: 20190506
  Transmission Date: 20190711
  Serious: Yes (Hospitalization)
  Sender: FDA-Public Use
  Company Number: US-UCBSA-2015008187

PATIENT
  Age: 31 Year
  Sex: Female

DRUGS (2)
  1. CIMZIA [Suspect]
     Active Substance: CERTOLIZUMAB PEGOL
     Indication: CROHN^S DISEASE
     Dosage: 200 MG, EV 4 WEEKS
     Route: 058
     Dates: start: 20100317, end: 20141226
  2. CIMZIA [Suspect]
     Active Substance: CERTOLIZUMAB PEGOL
     Dosage: 400 MILLIGRAM, EV 2 WEEKS(QOW)
     Route: 058
     Dates: start: 20160527

REACTIONS (2)
  - Pneumonia [Unknown]
  - Skin disorder [Unknown]

NARRATIVE: CASE EVENT DATE: 201306
